FAERS Safety Report 25026395 (Version 1)
Quarter: 2025Q1

REPORT INFORMATION
  Report Type: Report from Study
  Country: IN (occurrence: IN)
  Receive Date: 20250301
  Receipt Date: 20250301
  Transmission Date: 20250409
  Serious: Yes (Other)
  Sender: ROCHE
  Company Number: IN-ROCHE-10000216031

PATIENT
  Age: 56 Year
  Sex: Male
  Weight: 68.7 kg

DRUGS (1)
  1. TECENTRIQ [Suspect]
     Active Substance: ATEZOLIZUMAB
     Indication: Hepatocellular carcinoma
     Route: 042
     Dates: start: 20240819

REACTIONS (5)
  - Hepatic necrosis [Unknown]
  - Metastasis [Unknown]
  - Retroperitoneal lymphadenopathy [Unknown]
  - Abdominal wall disorder [Unknown]
  - Renal mass [Unknown]

NARRATIVE: CASE EVENT DATE: 20241105
